FAERS Safety Report 20423068 (Version 2)
Quarter: 2022Q2

REPORT INFORMATION
  Report Type: Spontaneous
  Country: US (occurrence: US)
  Receive Date: 20220203
  Receipt Date: 20220615
  Transmission Date: 20220720
  Serious: No
  Sender: FDA-Public Use
  Company Number: US-KARYOPHARM-2022KPT000075

PATIENT

DRUGS (3)
  1. XPOVIO [Suspect]
     Active Substance: SELINEXOR
     Indication: Diffuse large B-cell lymphoma
     Dosage: 20 MG, 2X/WEEK
     Route: 048
     Dates: start: 20220118
  2. TEMAZEPAM [Concomitant]
     Active Substance: TEMAZEPAM
  3. RELISTOR [Concomitant]
     Active Substance: METHYLNALTREXONE BROMIDE

REACTIONS (6)
  - Headache [Unknown]
  - Insomnia [Unknown]
  - Hyperhidrosis [Unknown]
  - Abdominal pain upper [Unknown]
  - Nausea [Unknown]
  - Cataract [Unknown]

NARRATIVE: CASE EVENT DATE: 20220118
